FAERS Safety Report 4273094-4 (Version None)
Quarter: 2004Q1

REPORT INFORMATION
  Report Type: 
  Country: None (occurrence: None)
  Receive Date: 20040116
  Receipt Date: 20040109
  Transmission Date: 20041129
  Serious: Yes (Other)
  Sender: FDA-Public Use
  Company Number: US-BRISTOL-MYERS SQUIBB COMPANY-12474243

PATIENT
  Age: 67 Year
  Sex: Female
  Weight: 59 kg

DRUGS (8)
  1. PARAPLATIN [Suspect]
     Indication: OVARIAN CANCER
     Route: 042
     Dates: start: 20040109, end: 20040109
  2. PACLITAXEL [Suspect]
     Indication: OVARIAN CANCER
  3. ANZEMET [Concomitant]
     Indication: PREMEDICATION
     Route: 042
  4. DECADRON [Concomitant]
     Indication: PREMEDICATION
     Route: 042
  5. DECADRON [Concomitant]
     Route: 048
  6. DECADRON [Concomitant]
     Route: 048
  7. TAGAMET [Concomitant]
     Indication: PREMEDICATION
     Route: 042
  8. BENADRYL [Concomitant]
     Indication: PREMEDICATION
     Route: 042

REACTIONS (5)
  - BLOOD PRESSURE DECREASED [None]
  - COUGH [None]
  - DYSPNOEA [None]
  - OXYGEN SATURATION DECREASED [None]
  - RESPIRATORY RATE INCREASED [None]
